FAERS Safety Report 8933854 (Version 1)
Quarter: 2012Q4

REPORT INFORMATION
  Report Type: Report from Study
  Country: US (occurrence: US)
  Receive Date: 20121129
  Receipt Date: 20121129
  Transmission Date: 20130627
  Serious: Yes (Hospitalization, Other)
  Sender: FDA-Public Use
  Company Number: US-NAPPMUNDI-USA-2012-0096158

PATIENT
  Age: 66 None
  Sex: Male

DRUGS (2)
  1. OXYCONTIN (NDA 22-272) [Suspect]
     Indication: PRODUCT USED FOR UNKNOWN INDICATION
     Dosage: 40 mg, tid
     Route: 048
  2. OXYCONTIN (NDA 22-272) [Suspect]
     Dosage: 80 mg, tid
     Route: 048

REACTIONS (6)
  - Heart rate decreased [Unknown]
  - Cardiac pacemaker insertion [Unknown]
  - Fall [Recovered/Resolved]
  - Loss of consciousness [Unknown]
  - Contusion [Unknown]
  - Intervertebral disc protrusion [Unknown]
